FAERS Safety Report 8771938 (Version 2)
Quarter: 2012Q4

REPORT INFORMATION
  Report Type: Report from Study
  Country: CA (occurrence: CA)
  Receive Date: 20120906
  Receipt Date: 20120926
  Transmission Date: 20130627
  Serious: Yes (Hospitalization)
  Sender: FDA-Public Use
  Company Number: CA-JNJFOC-20120813732

PATIENT
  Sex: Female
  Weight: 54.5 kg

DRUGS (2)
  1. REMICADE [Suspect]
     Indication: CROHN^S DISEASE
     Route: 042
  2. REMICADE [Suspect]
     Indication: CROHN^S DISEASE
     Dosage: 9th dose
     Route: 042
     Dates: start: 20120827

REACTIONS (4)
  - Uterine haemorrhage [Not Recovered/Not Resolved]
  - Cholelithiasis [Unknown]
  - Renal abscess [Unknown]
  - Haemoglobin decreased [Unknown]
